FAERS Safety Report 17650319 (Version 1)
Quarter: 2020Q2

REPORT INFORMATION
  Report Type: Spontaneous
  Country: IT (occurrence: IT)
  Receive Date: 20200409
  Receipt Date: 20200409
  Transmission Date: 20200713
  Serious: Yes (Hospitalization)
  Sender: FDA-Public Use
  Company Number: IT-MYLANLABS-2020M1035244

PATIENT
  Age: 59 Year
  Sex: Male

DRUGS (15)
  1. FLUDARABINE [Suspect]
     Active Substance: FLUDARABINE PHOSPHATE
     Dosage: TWO CYCLES OF CONSOLIDATION ..
     Route: 065
  2. METHOTREXATE. [Suspect]
     Active Substance: METHOTREXATE
     Indication: PROPHYLAXIS AGAINST GRAFT VERSUS HOST DISEASE
     Dosage: ON DAY 1
     Route: 065
     Dates: start: 201803
  3. LENALIDOMIDE [Suspect]
     Active Substance: LENALIDOMIDE
     Indication: MYELODYSPLASTIC SYNDROME
     Route: 065
  4. CYTARABINE. [Suspect]
     Active Substance: CYTARABINE
     Dosage: TWO CYCLES OF CONSOLIDATION CHEMOTHERAPY
     Route: 065
  5. FLUDARABINE [Suspect]
     Active Substance: FLUDARABINE PHOSPHATE
     Dosage: TBF REDUCED-INTENSITY ..
     Route: 065
     Dates: start: 201803
  6. MITOXANTRONE [Suspect]
     Active Substance: MITOXANTRONE HYDROCHLORIDE
     Dosage: TWO CYCLES OF CONSOLIDATION ..
     Route: 065
  7. MICAFUNGIN. [Concomitant]
     Active Substance: MICAFUNGIN SODIUM
     Indication: ANTIFUNGAL PROPHYLAXIS
     Route: 065
  8. CYTARABINE. [Suspect]
     Active Substance: CYTARABINE
     Indication: ACUTE MYELOID LEUKAEMIA
     Dosage: MITO-FLAG INDUCTION SCHEME
     Route: 065
  9. BUSULFAN. [Suspect]
     Active Substance: BUSULFAN
     Indication: ACUTE MYELOID LEUKAEMIA
     Dosage: TBF REDUCED-INTENSITY ...
     Route: 065
     Dates: start: 201803
  10. ANTITHYMOCYTE IMMUNOGLOBULIN (RABBIT) [Suspect]
     Active Substance: LAPINE T-LYMPHOCYTE IMMUNE GLOBULIN
     Indication: PROPHYLAXIS AGAINST GRAFT VERSUS HOST DISEASE
     Dosage: ON DAYS -3,-2,-1
     Route: 042
     Dates: start: 201803
  11. CYCLOSPORINE. [Suspect]
     Active Substance: CYCLOSPORINE
     Indication: PROPHYLAXIS AGAINST GRAFT VERSUS HOST DISEASE
     Dosage: STARTED FROM DAY - 1
     Route: 042
     Dates: start: 201803
  12. DEFERASIROX. [Concomitant]
     Active Substance: DEFERASIROX
     Indication: CHELATION THERAPY
     Dosage: DEFERASIROX WAS ..
     Route: 065
     Dates: end: 201803
  13. MITOXANTRONE [Suspect]
     Active Substance: MITOXANTRONE HYDROCHLORIDE
     Indication: ACUTE MYELOID LEUKAEMIA
     Dosage: MITO-FLAG INDUCTION SCHEME;..
     Route: 065
  14. THIOTEPA. [Suspect]
     Active Substance: THIOTEPA
     Indication: ACUTE MYELOID LEUKAEMIA
     Dosage: TBF REDUCED-INTENSITY ..
     Route: 065
     Dates: start: 201803
  15. FLUDARABINE [Suspect]
     Active Substance: FLUDARABINE PHOSPHATE
     Indication: ACUTE MYELOID LEUKAEMIA
     Dosage: MITO-FLAG INDUCTION SCHEME..
     Route: 065

REACTIONS (6)
  - Thrombophlebitis [Recovered/Resolved]
  - Ophthalmic vein thrombosis [Recovered/Resolved]
  - VIth nerve paralysis [Recovered/Resolved]
  - Rhinocerebral mucormycosis [Recovered/Resolved]
  - Trigeminal neuralgia [Recovered/Resolved]
  - Cranial nerve disorder [Recovered/Resolved]

NARRATIVE: CASE EVENT DATE: 2018
